FAERS Safety Report 8543076-2 (Version None)
Quarter: 2012Q3

REPORT INFORMATION
  Report Type: 
  Country: None (occurrence: None)
  Receive Date: 20120727
  Receipt Date: 20110620
  Transmission Date: 20120928
  Serious: No
  Sender: FDA-Public Use
  Company Number: US-MYLANLABS-2011S1011589

PATIENT
  Age: 81 Year
  Sex: Female
  Weight: 95.26 kg

DRUGS (2)
  1. CRESTOR [Concomitant]
     Indication: BLOOD CHOLESTEROL INCREASED
  2. LEVOTHYROXINE SODIUM [Suspect]
     Indication: HYPOTHYROIDISM
     Route: 048

REACTIONS (14)
  - MYALGIA [None]
  - ALOPECIA [None]
  - SKIN EXFOLIATION [None]
  - DYSPHONIA [None]
  - FATIGUE [None]
  - ARTHRALGIA [None]
  - WEIGHT INCREASED [None]
  - BODY HEIGHT DECREASED [None]
  - BONE PAIN [None]
  - SWELLING FACE [None]
  - INSOMNIA [None]
  - ONYCHOCLASIS [None]
  - CONSTIPATION [None]
  - MADAROSIS [None]
